FAERS Safety Report 5247539-7 (Version None)
Quarter: 2007Q1

REPORT INFORMATION
  Report Type: 
  Country: None (occurrence: None)
  Receive Date: 20070227
  Receipt Date: 20070216
  Transmission Date: 20070707
  Serious: Yes (Other)
  Sender: FDA-Public Use
  Company Number: PHNR2007AU00657

PATIENT
  Sex: Female

DRUGS (1)
  1. RITALIN LA [Suspect]
     Indication: RESTLESS LEGS SYNDROME
     Dosage: 100 MG, QD

REACTIONS (3)
  - CONFUSIONAL STATE [None]
  - PRESSURE OF SPEECH [None]
  - REPETITIVE SPEECH [None]
